FAERS Safety Report 17003672 (Version 3)
Quarter: 2019Q4

REPORT INFORMATION
  Report Type: Report from Study
  Country: BG (occurrence: BG)
  Receive Date: 20191107
  Receipt Date: 20191122
  Transmission Date: 20200122
  Serious: Yes (Hospitalization)
  Sender: FDA-Public Use
  Company Number: BG-AMGEN-BGRNI2019135318

PATIENT
  Age: 74 Year
  Sex: Male
  Weight: 78 kg

DRUGS (2)
  1. DENOSUMAB [Suspect]
     Active Substance: DENOSUMAB
     Indication: PROPHYLAXIS
     Dosage: UNK
     Route: 065
  2. DENOSUMAB [Suspect]
     Active Substance: DENOSUMAB
     Dosage: UNK
     Route: 065
     Dates: start: 20191106

REACTIONS (4)
  - Osteitis [Recovered/Resolved with Sequelae]
  - Pain in jaw [Not Recovered/Not Resolved]
  - Osteomyelitis [Recovered/Resolved]
  - Bone pain [Recovered/Resolved with Sequelae]

NARRATIVE: CASE EVENT DATE: 20190711
